FAERS Safety Report 8381869-5 (Version None)
Quarter: 2012Q2

REPORT INFORMATION
  Report Type: 
  Country: None (occurrence: None)
  Receive Date: 20120522
  Receipt Date: 20120522
  Transmission Date: 20120825
  Serious: Yes (Other)
  Sender: FDA-Public Use
  Company Number: None

PATIENT
  Age: 25 Year
  Sex: Male
  Weight: 112.9457 kg

DRUGS (2)
  1. CIPROFLOXACIN HCL [Suspect]
     Indication: OROPHARYNGEAL PAIN
     Dosage: 1 PILL 1 PO
     Route: 048
     Dates: start: 20120517, end: 20120517
  2. CIPROFLOXACIN HCL [Suspect]
     Indication: EAR INFECTION
     Dosage: 1 PILL 1 PO
     Route: 048
     Dates: start: 20120517, end: 20120517

REACTIONS (4)
  - TENDON PAIN [None]
  - GAIT DISTURBANCE [None]
  - ARTHRALGIA [None]
  - INSOMNIA [None]
